FAERS Safety Report 15996813 (Version 1)
Quarter: 2019Q1

REPORT INFORMATION
  Report Type: Spontaneous
  Country: US (occurrence: US)
  Receive Date: 20190222
  Receipt Date: 20190222
  Transmission Date: 20190418
  Serious: Yes (Disabling)
  Sender: FDA-Public Use
  Company Number: None

PATIENT
  Age: 59 Year
  Sex: Female
  Weight: 63 kg

DRUGS (15)
  1. MIRAPEX [Concomitant]
     Active Substance: PRAMIPEXOLE DIHYDROCHLORIDE
  2. CLONAZEPAM. [Concomitant]
     Active Substance: CLONAZEPAM
  3. CENTRUM SILVER WOMEN^S [Concomitant]
  4. TRINTELLIX [Suspect]
     Active Substance: VORTIOXETINE HYDROBROMIDE
     Indication: DEPRESSION
     Dosage: ?          QUANTITY:30 TABLET(S);?
     Route: 048
     Dates: start: 20180815, end: 20181101
  5. METOPROLOL. [Concomitant]
     Active Substance: METOPROLOL
  6. LYRICA [Concomitant]
     Active Substance: PREGABALIN
  7. PROBIOTICS [Concomitant]
     Active Substance: PROBIOTICS NOS
  8. HAIR + NAILS [Concomitant]
  9. LAXATIVES [Concomitant]
     Active Substance: UNSPECIFIED INGREDIENT
  10. ZYRTEC [Concomitant]
     Active Substance: CETIRIZINE HYDROCHLORIDE
  11. NEXIUM [Concomitant]
     Active Substance: ESOMEPRAZOLE MAGNESIUM
  12. METHOCARBAMAL [Concomitant]
  13. FIBER [Concomitant]
     Active Substance: PSYLLIUM HUSK
  14. PREMARIN [Concomitant]
     Active Substance: ESTROGENS, CONJUGATED
  15. SINGULAIR [Concomitant]
     Active Substance: MONTELUKAST SODIUM

REACTIONS (3)
  - Tinnitus [None]
  - Drug ineffective [None]
  - Withdrawal syndrome [None]

NARRATIVE: CASE EVENT DATE: 20181101
